FAERS Safety Report 10227499 (Version 1)
Quarter: 2014Q2

REPORT INFORMATION
  Report Type: Spontaneous
  Country: US (occurrence: None)
  Receive Date: 20140609
  Receipt Date: 20140609
  Transmission Date: 20141212
  Serious: Yes (Disabling)
  Sender: FDA-Public Use
  Company Number: None

PATIENT
  Age: 65 Year
  Sex: Male
  Weight: 83.92 kg

DRUGS (1)
  1. LEVAQUIN [Suspect]
     Indication: SINUSITIS
     Dates: start: 20140128, end: 20140208

REACTIONS (14)
  - Pain in extremity [None]
  - Arrhythmia [None]
  - Musculoskeletal pain [None]
  - Pain in extremity [None]
  - Pain in extremity [None]
  - Lethargy [None]
  - Insomnia [None]
  - Malaise [None]
  - Tendonitis [None]
  - Arthralgia [None]
  - Arthralgia [None]
  - Deafness [None]
  - Iliotibial band syndrome [None]
  - No therapeutic response [None]
